FAERS Safety Report 23493458 (Version 1)
Quarter: 2024Q1

REPORT INFORMATION
  Report Type: Report from Study
  Country: GB (occurrence: GB)
  Receive Date: 20240207
  Receipt Date: 20240207
  Transmission Date: 20240409
  Serious: Yes (Other)
  Sender: FDA-Public Use
  Company Number: GB-SAMSUNG BIOEPIS-SB-2023-32962

PATIENT
  Sex: Female

DRUGS (1)
  1. IMRALDI [Suspect]
     Active Substance: ADALIMUMAB
     Indication: Crohn^s disease
     Dosage: 40MG/0.8ML;
     Route: 058

REACTIONS (7)
  - Keratitis [Unknown]
  - Eye infection [Unknown]
  - Visual impairment [Unknown]
  - Skin ulcer [Unknown]
  - Nasal crusting [Unknown]
  - Onychomadesis [Unknown]
  - Tinnitus [Unknown]
